FAERS Safety Report 6361188-9 (Version None)
Quarter: 2009Q3

REPORT INFORMATION
  Report Type: 
  Country: None (occurrence: None)
  Receive Date: 20090918
  Receipt Date: 20090914
  Transmission Date: 20100115
  Serious: Yes (Other)
  Sender: FDA-Public Use
  Company Number: GB-TEVA-209326ISR

PATIENT
  Age: 8 Year
  Sex: Female
  Weight: 28.8 kg

DRUGS (3)
  1. VALPROIC ACID [Interacting]
     Indication: DRUG USE FOR UNKNOWN INDICATION
     Route: 048
  2. RUFINAMIDE [Suspect]
     Indication: LENNOX-GASTAUT SYNDROME
     Route: 048
     Dates: start: 20090104, end: 20090428
  3. RUFINAMIDE [Suspect]
     Route: 048
     Dates: end: 20090103

REACTIONS (3)
  - APPETITE DISORDER [None]
  - ATAXIA [None]
  - DRUG INTERACTION [None]
